FAERS Safety Report 26091180 (Version 1)
Quarter: 2025Q4

REPORT INFORMATION
  Report Type: Spontaneous
  Country: US (occurrence: US)
  Receive Date: 20251126
  Receipt Date: 20251126
  Transmission Date: 20260117
  Serious: No
  Sender: ZYDUS PHARM
  Company Number: US-CADILA HEALTHCARE LIMITED-US-ZYDUS-130904

PATIENT

DRUGS (1)
  1. FLUOCINONIDE [Suspect]
     Active Substance: FLUOCINONIDE
     Indication: Skin disorder
     Dosage: UNK UNK, BID
     Route: 061
     Dates: start: 202510, end: 202510

REACTIONS (2)
  - Hypoaesthesia [Not Recovered/Not Resolved]
  - Nail cuticle fissure [Not Recovered/Not Resolved]

NARRATIVE: CASE EVENT DATE: 20251001
